FAERS Safety Report 10206503 (Version 4)
Quarter: 2015Q1

REPORT INFORMATION
  Report Type: Spontaneous
  Country: US (occurrence: US)
  Receive Date: 20140530
  Receipt Date: 20150127
  Transmission Date: 20150720
  Serious: Yes (Other)
  Sender: FDA-Public Use
  Company Number: US-GLAXOSMITHKLINE-A0915383A

PATIENT
  Age: 38 Year
  Sex: Female
  Weight: 80 kg

DRUGS (10)
  1. LETAIRIS [Concomitant]
     Active Substance: AMBRISENTAN
  2. FLOLAN [Suspect]
     Active Substance: EPOPROSTENOL SODIUM
     Dosage: UNK
     Dates: start: 20060412
  3. FLOLAN [Suspect]
     Active Substance: EPOPROSTENOL SODIUM
     Dosage: 54.5NG/KG/MIN
  4. COUMADIN [Concomitant]
     Active Substance: WARFARIN SODIUM
  5. ATIVAN [Concomitant]
     Active Substance: LORAZEPAM
  6. ARMOUR [Concomitant]
  7. OXYGEN. [Concomitant]
     Active Substance: OXYGEN
  8. FLOLAN [Suspect]
     Active Substance: EPOPROSTENOL SODIUM
     Dosage: UNK
     Dates: start: 20060412
  9. FLOLAN [Suspect]
     Active Substance: EPOPROSTENOL SODIUM
     Indication: PULMONARY ARTERIAL HYPERTENSION
     Dosage: CONTINUOUS26 NG/KG/MIN
     Dates: start: 20060412
  10. FLOLAN [Suspect]
     Active Substance: EPOPROSTENOL SODIUM
     Dosage: 49.5 NG/KG/MIN

REACTIONS (11)
  - Chest discomfort [Unknown]
  - Blood iron decreased [Unknown]
  - Medical device complication [Unknown]
  - Central venous catheterisation [Unknown]
  - Dyspnoea [Recovered/Resolved]
  - Malaise [Unknown]
  - Incorrect dose administered [Unknown]
  - Erythema [Unknown]
  - Device leakage [Recovered/Resolved]
  - Chest pain [Recovered/Resolved]
  - Drug administration error [Unknown]

NARRATIVE: CASE EVENT DATE: 20130724
